FAERS Safety Report 4552108-8 (Version None)
Quarter: 2005Q1

REPORT INFORMATION
  Report Type: 
  Country: None (occurrence: None)
  Receive Date: 20050112
  Receipt Date: 20041229
  Transmission Date: 20050727
  Serious: Yes (Other)
  Sender: FDA-Public Use
  Company Number: USA041287098

PATIENT
  Age: 52 Year
  Sex: Male
  Weight: 91 kg

DRUGS (1)
  1. STRATTERA [Suspect]
     Indication: DISTURBANCE IN ATTENTION
     Dosage: 80 MG DAY
     Dates: start: 20041001

REACTIONS (3)
  - BENIGN PROSTATIC HYPERPLASIA [None]
  - BLOOD URINE PRESENT [None]
  - FORMICATION [None]
